FAERS Safety Report 9736993 (Version 1)
Quarter: 2013Q4

REPORT INFORMATION
  Report Type: Spontaneous
  Country: US (occurrence: US)
  Receive Date: 20131206
  Receipt Date: 20131206
  Transmission Date: 20140711
  Serious: No
  Sender: FDA-Public Use
  Company Number: US-GILEAD-2009-0023168

PATIENT
  Sex: Female
  Weight: 71.67 kg

DRUGS (11)
  1. LETAIRIS [Suspect]
     Indication: PULMONARY ARTERIAL HYPERTENSION
     Route: 048
     Dates: start: 20090625
  2. METOPROLOL [Concomitant]
  3. COZAAR [Concomitant]
  4. DILTIAZEM ER [Concomitant]
     Route: 048
  5. METHOTREXATE [Concomitant]
     Route: 048
  6. SIMVASTATIN [Concomitant]
  7. METFORMIN HCL 100% [Concomitant]
  8. ASPIRIN [Concomitant]
     Route: 048
  9. REMICADE [Concomitant]
  10. NEXIUM [Concomitant]
  11. FOLIC ACID [Concomitant]

REACTIONS (1)
  - Dyspnoea [Unknown]
